FAERS Safety Report 23786907 (Version 1)
Quarter: 2024Q2

REPORT INFORMATION
  Report Type: Spontaneous
  Country: IT (occurrence: IT)
  Receive Date: 20240426
  Receipt Date: 20240426
  Transmission Date: 20240716
  Serious: Yes (Other)
  Sender: FDA-Public Use
  Company Number: None

PATIENT
  Age: 66 Year
  Sex: Female

DRUGS (4)
  1. FLUOROURACIL [Suspect]
     Active Substance: FLUOROURACIL
     Indication: Colon cancer metastatic
     Dosage: START OF THERAPY 02/28/2024 - 1ST CYCLE - THERAPY EVERY 14 DAYS - BOLUS INFUSION.?DRUG ALSO ADMIN...
     Route: 042
     Dates: start: 20240228, end: 20240228
  2. BEVACIZUMAB [Suspect]
     Active Substance: BEVACIZUMAB
     Indication: Colon cancer metastatic
     Dosage: START OF THERAPY 02/28/2024 - 1ST CYCLE - THERAPY EVERY 14 DAYS
     Route: 042
     Dates: start: 20240228, end: 20240228
  3. LEVOLEUCOVORIN [Concomitant]
     Active Substance: LEVOLEUCOVORIN
     Indication: Product used for unknown indication
     Route: 065
  4. IRINOTECAN [Suspect]
     Active Substance: IRINOTECAN
     Indication: Colon cancer metastatic
     Dosage: START OF THERAPY 02/28/2024 - 1ST CYCLE - THERAPY EVERY 14 DAYS
     Route: 042
     Dates: start: 20240228, end: 20240228

REACTIONS (2)
  - Leukopenia [Recovering/Resolving]
  - Neutropenia [Recovering/Resolving]

NARRATIVE: CASE EVENT DATE: 20240308
